FAERS Safety Report 24807001 (Version 1)
Quarter: 2025Q1

REPORT INFORMATION
  Report Type: Report from Study
  Country: US (occurrence: US)
  Receive Date: 20250104
  Receipt Date: 20250104
  Transmission Date: 20250408
  Serious: Yes (Death)
  Sender: JOHNSON AND JOHNSON
  Company Number: US-JNJFOC-20241270018

PATIENT
  Age: 65 Year
  Sex: Male

DRUGS (1)
  1. CILTACABTAGENE AUTOLEUCEL [Suspect]
     Active Substance: CILTACABTAGENE AUTOLEUCEL
     Indication: Plasma cell myeloma
     Route: 042
     Dates: start: 2024

REACTIONS (4)
  - Immune effector cell-associated neurotoxicity syndrome [Fatal]
  - Bacterial infection [Fatal]
  - Plasma cell myeloma [Fatal]
  - Respiratory failure [Fatal]
